FAERS Safety Report 8265748-X (Version None)
Quarter: 2012Q2

REPORT INFORMATION
  Report Type: 
  Country: None (occurrence: None)
  Receive Date: 20120406
  Receipt Date: 20120403
  Transmission Date: 20120825
  Serious: Yes (Death)
  Sender: FDA-Public Use
  Company Number: ES-SANOFI-AVENTIS-2012SA023443

PATIENT
  Age: 65 Year
  Sex: Male

DRUGS (1)
  1. TAXOTERE [Suspect]
     Route: 065
     Dates: start: 20100813, end: 20100924

REACTIONS (5)
  - DIARRHOEA [None]
  - PYREXIA [None]
  - NEUTROPENIA [None]
  - TREMOR [None]
  - DEPRESSED MOOD [None]
